FAERS Safety Report 8775859 (Version 2)
Quarter: 2012Q4

REPORT INFORMATION
  Report Type: 
  Country: BR (occurrence: BR)
  Receive Date: 20120910
  Receipt Date: 20121022
  Transmission Date: 20130627
  Serious: Yes (Hospitalization)
  Sender: FDA-Public Use
  Company Number: BR-009507513-1203BRA00058

PATIENT
  Age: 69 None
  Sex: Female
  Weight: 48 kg

DRUGS (7)
  1. VICTRELIS [Suspect]
     Indication: HEPATITIS C
     Dosage: 800 mg, tid
     Route: 048
     Dates: start: 201201
  2. PEGINTRON [Suspect]
     Indication: HEPATITIS C
     Dosage: UNK Microgram, qw
     Route: 058
     Dates: start: 201201
  3. RIBAVIRIN [Concomitant]
     Indication: HEPATITIS C
     Dosage: 2 tablets, AM
     Route: 048
     Dates: start: 201201
  4. RIBAVIRIN [Concomitant]
     Dosage: 1 tablet, PM
     Route: 048
     Dates: start: 201201
  5. AZULIX [Concomitant]
     Indication: DIABETES MELLITUS
     Dosage: 1.5 mg, qd
     Route: 048
     Dates: start: 2005
  6. GLIFAGE [Concomitant]
     Indication: DIABETES MELLITUS
     Dosage: 500 mg, qd
     Route: 047
     Dates: start: 2007
  7. MICARDIS [Concomitant]
     Indication: HYPERTENSION
     Dosage: UNK
     Dates: start: 2005, end: 201202

REACTIONS (15)
  - Diarrhoea [Recovered/Resolved]
  - Anaemia [Recovering/Resolving]
  - Nausea [Recovered/Resolved]
  - Malaise [Unknown]
  - Fatigue [Unknown]
  - White blood cell count decreased [Not Recovered/Not Resolved]
  - Alopecia [Not Recovered/Not Resolved]
  - Dysgeusia [Not Recovered/Not Resolved]
  - Dry skin [Not Recovered/Not Resolved]
  - Pyrexia [Not Recovered/Not Resolved]
  - Nasopharyngitis [Not Recovered/Not Resolved]
  - Axillary mass [Not Recovered/Not Resolved]
  - Weight decreased [Not Recovered/Not Resolved]
  - Lymphoedema [Not Recovered/Not Resolved]
  - Therapeutic response unexpected [Unknown]
